FAERS Safety Report 7021379-0 (Version None)
Quarter: 2010Q3

REPORT INFORMATION
  Report Type: 
  Country: None (occurrence: None)
  Receive Date: 20100929
  Receipt Date: 20100917
  Transmission Date: 20110219
  Serious: Yes (Other)
  Sender: FDA-Public Use
  Company Number: US-PFIZER INC-2010079685

PATIENT
  Sex: Male

DRUGS (5)
  1. CHANTIX [Suspect]
     Indication: SMOKING CESSATION THERAPY
     Dosage: 1 MG,
     Dates: start: 20080201, end: 20081201
  2. TRUVADA [Concomitant]
     Indication: HIV TEST POSITIVE
     Dosage: UNK
  3. VIRAMUNE [Concomitant]
     Indication: HIV TEST POSITIVE
     Dosage: UNK
  4. VALTREX [Concomitant]
     Indication: HIV TEST POSITIVE
     Dosage: UNK
  5. COUMADIN [Concomitant]
     Indication: ANTICOAGULANT THERAPY
     Dosage: UNK
     Dates: start: 20060101

REACTIONS (4)
  - ANGER [None]
  - DEPRESSION [None]
  - MOOD SWINGS [None]
  - SUICIDE ATTEMPT [None]
